FAERS Safety Report 16921481 (Version 2)
Quarter: 2020Q4

REPORT INFORMATION
  Report Type: Report from Study
  Country: CR (occurrence: CR)
  Receive Date: 20191015
  Receipt Date: 20201111
  Transmission Date: 20210113
  Serious: Yes (Other)
  Sender: FDA-Public Use
  Company Number: NVSC2019CR001802

PATIENT
  Sex: Female

DRUGS (3)
  1. SANDOSTATIN LAR DEPOT [Suspect]
     Active Substance: OCTREOTIDE ACETATE
     Indication: ACROMEGALY
     Dosage: 20 MG, QMO
     Route: 030
     Dates: start: 2017
  2. SANDOSTATIN LAR DEPOT [Suspect]
     Active Substance: OCTREOTIDE ACETATE
  3. SANDOSTATIN LAR DEPOT [Suspect]
     Active Substance: OCTREOTIDE ACETATE

REACTIONS (27)
  - Back pain [Unknown]
  - Ovarian neoplasm [Unknown]
  - Fatigue [Unknown]
  - Neoplasm [Unknown]
  - Seborrhoea [Unknown]
  - Abdominal distension [Unknown]
  - Feeling hot [Recovered/Resolved]
  - Weight loss poor [Unknown]
  - Emotional disorder [Unknown]
  - Bone pain [Unknown]
  - Abdominal discomfort [Recovered/Resolved]
  - Leiomyoma [Unknown]
  - Foot deformity [Unknown]
  - Bite [Unknown]
  - Arthralgia [Unknown]
  - Anger [Unknown]
  - Anxiety [Unknown]
  - Brain neoplasm [Unknown]
  - Diarrhoea [Recovered/Resolved]
  - Pituitary tumour benign [Unknown]
  - Head deformity [Unknown]
  - Spinal pain [Unknown]
  - Alopecia [Unknown]
  - Headache [Unknown]
  - Infarction [Unknown]
  - Meningioma [Unknown]
  - Hernia [Unknown]

NARRATIVE: CASE EVENT DATE: 2017
